FAERS Safety Report 6375929-8 (Version None)
Quarter: 2009Q3

REPORT INFORMATION
  Report Type: 
  Country: None (occurrence: None)
  Receive Date: 20090924
  Receipt Date: 20090908
  Transmission Date: 20100115
  Serious: Yes (Hospitalization)
  Sender: FDA-Public Use
  Company Number: US-ASTRAZENECA-2009SE12046

PATIENT
  Age: 81 Year
  Sex: Female
  Weight: 63.5 kg

DRUGS (4)
  1. NEXIUM [Suspect]
     Route: 048
  2. LISINOPRIL [Concomitant]
     Indication: BLOOD PRESSURE
  3. METOPROLOL [Concomitant]
     Indication: BLOOD PRESSURE
  4. LOVAZA [Concomitant]

REACTIONS (3)
  - CARDIAC OPERATION [None]
  - ERUCTATION [None]
  - GALLBLADDER OPERATION [None]
